FAERS Safety Report 24224475 (Version 3)
Quarter: 2024Q3

REPORT INFORMATION
  Report Type: Spontaneous
  Country: PT (occurrence: PT)
  Receive Date: 20240819
  Receipt Date: 20240917
  Transmission Date: 20241017
  Serious: Yes (Other)
  Sender: GLAXOSMITHKLINE
  Company Number: None

PATIENT

DRUGS (8)
  1. VALACYCLOVIR [Suspect]
     Active Substance: VALACYCLOVIR HYDROCHLORIDE
     Indication: Drug therapy
     Dosage: 1 G
     Route: 065
  2. VALACYCLOVIR [Suspect]
     Active Substance: VALACYCLOVIR HYDROCHLORIDE
     Indication: Acute lymphocytic leukaemia
  3. METHOTREXATE SODIUM [Suspect]
     Active Substance: METHOTREXATE SODIUM
     Indication: B precursor type acute leukaemia
     Dosage: 30 MG, WE
     Route: 030
  4. METHOTREXATE SODIUM [Suspect]
     Active Substance: METHOTREXATE SODIUM
     Indication: Acute lymphocytic leukaemia
  5. IMATINIB [Suspect]
     Active Substance: IMATINIB
     Indication: B precursor type acute leukaemia
     Dosage: 400 MG, QD
     Route: 065
  6. IMATINIB [Suspect]
     Active Substance: IMATINIB
     Indication: Acute lymphocytic leukaemia
  7. THIOGUANINE [Suspect]
     Active Substance: THIOGUANINE
     Indication: Drug therapy
     Dosage: 2 DF, QOD (40 MG/20 MG EVERY OTHER DAY))
     Route: 065
  8. THIOGUANINE [Suspect]
     Active Substance: THIOGUANINE
     Indication: Acute lymphocytic leukaemia

REACTIONS (6)
  - Pneumonia [Unknown]
  - Pancytopenia [Unknown]
  - Red blood cell morphology abnormal [Unknown]
  - Monocyte morphology abnormal [Unknown]
  - Neutrophil morphology abnormal [Unknown]
  - White blood cell morphology abnormal [Unknown]
